FAERS Safety Report 7745289-6 (Version None)
Quarter: 2011Q3

REPORT INFORMATION
  Report Type: 
  Country: None (occurrence: None)
  Receive Date: 20110819
  Receipt Date: 20110620
  Transmission Date: 20111222
  Serious: Yes (Hospitalization)
  Sender: FDA-Public Use
  Company Number: 034496

PATIENT
  Age: 48 Year
  Sex: Male
  Weight: 96 kg

DRUGS (9)
  1. LAMOTRIGINE [Concomitant]
  2. CLONAZEPAM [Concomitant]
  3. LEVETIRACETAM [Suspect]
     Indication: EPILEPSY
     Dosage: 1000 MG ORAL, (4500 MG ORAL), (1000 MG ORAL)
     Route: 048
     Dates: start: 20080101
  4. LEVETIRACETAM [Suspect]
     Indication: EPILEPSY
     Dosage: 1000 MG ORAL, (4500 MG ORAL), (1000 MG ORAL)
     Route: 048
     Dates: start: 20100711, end: 20100101
  5. LEVETIRACETAM [Suspect]
     Indication: EPILEPSY
     Dosage: 1000 MG ORAL, (4500 MG ORAL), (1000 MG ORAL)
     Route: 048
     Dates: start: 20101029
  6. CARBAMAZEPINE [Concomitant]
  7. PHENYTOIN [Concomitant]
  8. LACOSAMIDE [Suspect]
  9. TOPIRAMATE [Concomitant]

REACTIONS (2)
  - TREMOR [None]
  - FATIGUE [None]
